FAERS Safety Report 4916064-2 (Version None)
Quarter: 2006Q1

REPORT INFORMATION
  Report Type: 
  Country: None (occurrence: None)
  Receive Date: 20060214
  Receipt Date: 20060202
  Transmission Date: 20060701
  Serious: Yes (Hospitalization)
  Sender: FDA-Public Use
  Company Number: 177032

PATIENT
  Age: 52 Year
  Sex: Female
  Weight: 56.6996 kg

DRUGS (2)
  1. AVONEX [Suspect]
     Indication: MULTIPLE SCLEROSIS
     Dosage: 30 UG; QW; IM
     Route: 030
     Dates: start: 20000301
  2. ARICEPT [Concomitant]

REACTIONS (6)
  - DEMENTIA [None]
  - EYE HAEMORRHAGE [None]
  - IMPAIRED HEALING [None]
  - RETINAL DETACHMENT [None]
  - RETINAL TEAR [None]
  - STRESS [None]
